FAERS Safety Report 11022015 (Version 1)
Quarter: 2015Q2

REPORT INFORMATION
  Report Type: Spontaneous
  Country: US (occurrence: US)
  Receive Date: 20150413
  Receipt Date: 20150413
  Transmission Date: 20150821
  Serious: Yes (Other)
  Sender: FDA-Public Use
  Company Number: US-TEVA-553457USA

PATIENT
  Sex: Female

DRUGS (1)
  1. COPAXONE [Suspect]
     Active Substance: GLATIRAMER ACETATE
     Indication: MULTIPLE SCLEROSIS
     Dates: start: 2014, end: 20150306

REACTIONS (9)
  - Multiple sclerosis [Unknown]
  - Drug ineffective [Unknown]
  - Cystitis [Unknown]
  - Bipolar disorder [Unknown]
  - Urinary tract disorder [Unknown]
  - Influenza like illness [Unknown]
  - Depression [Unknown]
  - Joint stiffness [Unknown]
  - Muscle spasms [Unknown]
